FAERS Safety Report 6333496-9 (Version None)
Quarter: 2009Q3

REPORT INFORMATION
  Report Type: 
  Country: None (occurrence: None)
  Receive Date: 20090828
  Receipt Date: 20090817
  Transmission Date: 20100115
  Serious: Yes (Other)
  Sender: FDA-Public Use
  Company Number: US-ELI_LILLY_AND_COMPANY-US200908003973

PATIENT
  Sex: Female

DRUGS (14)
  1. CYMBALTA [Suspect]
     Dosage: 60 MG, DAILY (1/D)
     Route: 065
     Dates: start: 20060101, end: 20090201
  2. CYMBALTA [Suspect]
     Dosage: 30 MG, 2/D
     Route: 065
     Dates: start: 20090101
  3. PREMARIN [Concomitant]
     Dosage: 0.625 MG, DAILY (1/D)
     Route: 065
  4. SOMA [Concomitant]
     Dosage: 350 MG, 4/D
     Route: 065
  5. KLONOPIN [Concomitant]
     Dosage: 2 MG, OTHER
     Route: 065
  6. INDERAL LA [Concomitant]
     Dosage: 80 MG, DAILY (1/D)
     Route: 065
  7. NEURONTIN [Concomitant]
     Dosage: 800 MG, 3/D
     Route: 065
  8. OSCAL 500-D [Concomitant]
     Dosage: UNK, DAILY (1/D)
     Route: 065
  9. CENTRUM [Concomitant]
     Dosage: UNK, DAILY (1/D)
     Route: 065
  10. LORTAB [Concomitant]
     Indication: PAIN
     Dosage: UNK, 4/D
     Route: 065
  11. ASCORBIC ACID [Concomitant]
     Dosage: 1000 MG, 2/D
     Route: 065
  12. HYDROCHLOROTHIAZIDE [Concomitant]
     Dosage: 12.5 MG, OTHER
     Route: 065
  13. VITAMIN D [Concomitant]
     Dosage: 500000 IU, WEEKLY (1/W)
     Route: 065
  14. SENNA-S /01035001/ [Concomitant]
     Dosage: UNK, AS NEEDED
     Route: 065

REACTIONS (6)
  - ABDOMINAL PAIN UPPER [None]
  - CATARACT [None]
  - EXTRAOCULAR MUSCLE DISORDER [None]
  - GASTRIC ULCER [None]
  - GLAUCOMA [None]
  - RETINAL DISORDER [None]
